FAERS Safety Report 9454364 (Version 1)
Quarter: 2013Q3

REPORT INFORMATION
  Report Type: Spontaneous
  Country: US (occurrence: US)
  Receive Date: 20130812
  Receipt Date: 20130812
  Transmission Date: 20140515
  Serious: Yes (Hospitalization)
  Sender: FDA-Public Use
  Company Number: US-AMGEN-USASP2013054759

PATIENT
  Sex: Female
  Weight: 58.96 kg

DRUGS (6)
  1. ENBREL [Suspect]
     Indication: PRODUCT USED FOR UNKNOWN INDICATION
     Dosage: 50 MG, QWK
     Route: 058
     Dates: start: 2007
  2. TRAMADOL                           /00599202/ [Concomitant]
     Dosage: 50 MG, UNK
  3. IMITREX                            /01044801/ [Concomitant]
     Dosage: 20 MG, UNK
  4. MULTIVITAMINS, PLAIN [Concomitant]
     Dosage: UNK
  5. VITAMIN B 12 [Concomitant]
     Dosage: 1000 MUG, UNK
  6. CALCIUM [Concomitant]
     Dosage: 500 UNK, UNK

REACTIONS (2)
  - Biliary neoplasm [Unknown]
  - Pancreatitis [Unknown]
